FAERS Safety Report 13668819 (Version 1)
Quarter: 2017Q2

REPORT INFORMATION
  Report Type: Spontaneous
  Country: US (occurrence: US)
  Receive Date: 20170620
  Receipt Date: 20170620
  Transmission Date: 20170830
  Serious: Yes (Hospitalization)
  Sender: FDA-Public Use
  Company Number: US-SA-2017SA107788

PATIENT
  Age: 52 Year
  Sex: Female
  Weight: 119 kg

DRUGS (7)
  1. GLUCOPHAGE [Suspect]
     Active Substance: METFORMIN HYDROCHLORIDE
     Indication: TYPE 2 DIABETES MELLITUS
     Route: 048
  2. GLUCOTROL [Concomitant]
     Active Substance: GLIPIZIDE
     Route: 065
  3. VASOTEC [Concomitant]
     Active Substance: ENALAPRIL MALEATE
     Route: 065
  4. GLUCOPHAGE [Suspect]
     Active Substance: METFORMIN HYDROCHLORIDE
     Indication: HYPERGLYCAEMIA
     Route: 048
  5. GLUCOPHAGE [Suspect]
     Active Substance: METFORMIN HYDROCHLORIDE
     Indication: HYPERGLYCAEMIA
     Route: 065
  6. GLUCOPHAGE [Suspect]
     Active Substance: METFORMIN HYDROCHLORIDE
     Indication: TYPE 2 DIABETES MELLITUS
     Route: 065
  7. GLIBENCLAMIDE [Suspect]
     Active Substance: GLYBURIDE
     Route: 065

REACTIONS (18)
  - Fatigue [Recovered/Resolved]
  - Ocular icterus [Recovered/Resolved]
  - Oedema peripheral [Recovered/Resolved]
  - Hepatitis acute [Recovered/Resolved]
  - Hepatotoxicity [Recovered/Resolved]
  - Pleural effusion [Recovered/Resolved]
  - Alanine aminotransferase increased [Recovered/Resolved]
  - Aspartate aminotransferase increased [Recovered/Resolved]
  - Hepatic necrosis [Recovered/Resolved]
  - Prothrombin time prolonged [Recovered/Resolved]
  - Diarrhoea [Recovered/Resolved]
  - Portal tract inflammation [Recovered/Resolved]
  - Blood alkaline phosphatase increased [Recovered/Resolved]
  - Cardiac murmur [Recovered/Resolved]
  - Lethargy [Recovered/Resolved]
  - Jaundice [Recovered/Resolved]
  - Biopsy liver abnormal [Recovered/Resolved]
  - Blood bilirubin increased [Recovered/Resolved]
